FAERS Safety Report 20952544 (Version 1)
Quarter: 2022Q2

REPORT INFORMATION
  Report Type: Spontaneous
  Country: ES (occurrence: ES)
  Receive Date: 20220613
  Receipt Date: 20220613
  Transmission Date: 20220721
  Serious: Yes (Other)
  Sender: FDA-Public Use
  Company Number: ES-SCALL-2022-ES-000073

PATIENT
  Age: 72 Year
  Sex: Male

DRUGS (1)
  1. DUTASTERIDE\TAMSULOSIN HYDROCHLORIDE [Suspect]
     Active Substance: DUTASTERIDE\TAMSULOSIN HYDROCHLORIDE
     Indication: Product used for unknown indication
     Dosage: 0.5 MG/0.4 MG
     Route: 065

REACTIONS (4)
  - Foreign body in throat [Unknown]
  - Dyspnoea [Unknown]
  - Oropharyngeal discomfort [Unknown]
  - Dysphagia [Unknown]
